FAERS Safety Report 8355935-4 (Version None)
Quarter: 2012Q2

REPORT INFORMATION
  Report Type: 
  Country: None (occurrence: None)
  Receive Date: 20120514
  Receipt Date: 20120503
  Transmission Date: 20120825
  Serious: Yes (Hospitalization, Disabling)
  Sender: FDA-Public Use
  Company Number: DE-US-EMD SERONO, INC.-7096656

PATIENT
  Sex: Female

DRUGS (1)
  1. REBIF [Suspect]
     Indication: MULTIPLE SCLEROSIS
     Route: 058
     Dates: start: 20071210, end: 20111117

REACTIONS (11)
  - METASTASES TO LIVER [None]
  - PAIN IN EXTREMITY [None]
  - PERIPHERAL ARTERIAL OCCLUSIVE DISEASE [None]
  - AMPUTATION [None]
  - THYROID CANCER [None]
  - OVARIAN CANCER [None]
  - METASTASES TO PLEURA [None]
  - HYPOTENSION [None]
  - CACHEXIA [None]
  - GANGRENE [None]
  - URINARY TRACT INFECTION [None]
